FAERS Safety Report 23378489 (Version 1)
Quarter: 2024Q1

REPORT INFORMATION
  Report Type: Spontaneous
  Country: US (occurrence: None)
  Receive Date: 20240106
  Receipt Date: 20240106
  Transmission Date: 20240410
  Serious: Yes (Hospitalization)
  Sender: FDA-Public Use
  Company Number: None

PATIENT
  Age: 12 Year
  Sex: Male
  Weight: 38.6 kg

DRUGS (3)
  1. CYCLOPHOSPHAMIDE [Suspect]
     Active Substance: CYCLOPHOSPHAMIDE
     Dates: end: 20231221
  2. DACTINOMYCIN [Suspect]
     Active Substance: DACTINOMYCIN
     Dates: end: 20231221
  3. VINORELBINE TARTRATE [Suspect]
     Active Substance: VINORELBINE TARTRATE
     Dates: end: 20231221

REACTIONS (8)
  - Ascites [None]
  - Sepsis [None]
  - Bacterial infection [None]
  - Mucosal inflammation [None]
  - Febrile neutropenia [None]
  - Respiratory distress [None]
  - Hypoxia [None]
  - Blood bilirubin increased [None]

NARRATIVE: CASE EVENT DATE: 20231230
